FAERS Safety Report 5525414-8 (Version None)
Quarter: 2007Q4

REPORT INFORMATION
  Report Type: 
  Country: None (occurrence: None)
  Receive Date: 20071119
  Receipt Date: 20071101
  Transmission Date: 20080405
  Serious: Yes (Hospitalization)
  Sender: FDA-Public Use
  Company Number: ACO_00389_2007

PATIENT
  Sex: Female
  Weight: 60 kg

DRUGS (8)
  1. TERNELIN [Suspect]
     Indication: SPINAL OSTEOARTHRITIS
     Dosage: (3 MG QD ORAL)
     Route: 048
     Dates: end: 20071001
  2. LORCAM [Concomitant]
  3. BLOPRESS [Concomitant]
  4. TRICHLORMETHIAZIDE [Concomitant]
  5. NATRIX [Concomitant]
  6. MUCOSTA [Concomitant]
  7. MEILAX [Concomitant]
  8. VOLTAREN [Concomitant]

REACTIONS (2)
  - DYSARTHRIA [None]
  - SPINAL COLUMN STENOSIS [None]
